FAERS Safety Report 23974625 (Version 1)
Quarter: 2024Q2

REPORT INFORMATION
  Report Type: Spontaneous
  Country: US (occurrence: US)
  Receive Date: 20240614
  Receipt Date: 20240614
  Transmission Date: 20240717
  Serious: No
  Sender: FDA-Public Use
  Company Number: US-JNJFOC-20240602543

PATIENT
  Sex: Male

DRUGS (1)
  1. MENS ROGAINE [Suspect]
     Active Substance: MINOXIDIL
     Indication: Alopecia
     Route: 061

REACTIONS (1)
  - Alopecia [Unknown]
